FAERS Safety Report 9873170 (Version 2)
Quarter: 2014Q1

REPORT INFORMATION
  Report Type: Other
  Country: US (occurrence: US)
  Receive Date: 20140206
  Receipt Date: 20140206
  Transmission Date: 20141002
  Serious: Yes (Hospitalization)
  Sender: FDA-Public Use
  Company Number: US-ACORDA-ACO_100808_2013

PATIENT
  Age: 47 Year
  Sex: Female

DRUGS (7)
  1. AMPYRA [Suspect]
     Indication: MULTIPLE SCLEROSIS
     Dosage: 10 MG, Q 12 HRS
     Route: 048
     Dates: start: 201305, end: 20131203
  2. COPAXONE [Concomitant]
     Indication: MULTIPLE SCLEROSIS
     Dosage: 20 MG, QD
     Route: 058
  3. EPITOL [Concomitant]
     Indication: PAIN
     Dosage: 400 MG, TID
     Route: 048
  4. LYRICA [Concomitant]
     Indication: PAIN
     Dosage: 200 MG, BID
     Route: 048
  5. EFFEXOR [Concomitant]
     Indication: AFFECTIVE DISORDER
     Dosage: 37.5 UNK, QD
     Route: 048
  6. ZOCOR [Concomitant]
     Indication: BLOOD CHOLESTEROL
     Dosage: 10 MG, QD
     Route: 048
  7. BACLOFEN [Concomitant]
     Indication: MULTIPLE SCLEROSIS
     Dosage: 20 MG, QID
     Route: 048

REACTIONS (1)
  - Pneumonia [Recovered/Resolved]
